FAERS Safety Report 13151838 (Version 2)
Quarter: 2017Q3

REPORT INFORMATION
  Report Type: Spontaneous
  Country: IN (occurrence: IN)
  Receive Date: 20170125
  Receipt Date: 20170815
  Transmission Date: 20171127
  Serious: Yes (Death, Life-Threatening, Hospitalization, Other)
  Sender: FDA-Public Use
  Company Number: IN-PFIZER INC-2017031742

PATIENT
  Age: 57 Year
  Sex: Female

DRUGS (2)
  1. SILDENAFIL CITRATE. [Suspect]
     Active Substance: SILDENAFIL CITRATE
     Indication: PULMONARY HYPERTENSION
     Dosage: UNK
  2. BOSENTAN. [Suspect]
     Active Substance: BOSENTAN
     Indication: PULMONARY HYPERTENSION
     Dosage: UNK

REACTIONS (4)
  - Pulmonary veno-occlusive disease [Fatal]
  - Pulmonary capillary haemangiomatosis [Fatal]
  - Condition aggravated [Fatal]
  - Cardio-respiratory arrest [Fatal]
